FAERS Safety Report 6497638-7 (Version None)
Quarter: 2009Q4

REPORT INFORMATION
  Report Type: 
  Country: None (occurrence: None)
  Receive Date: 20091215
  Receipt Date: 20091203
  Transmission Date: 20100525
  Serious: Yes (Hospitalization)
  Sender: FDA-Public Use
  Company Number: SK-ROCHE-672711

PATIENT
  Sex: Male

DRUGS (5)
  1. ROFERON-A [Suspect]
     Route: 065
     Dates: start: 20060728, end: 20091130
  2. MILURIT [Concomitant]
  3. ANOPYRIN [Concomitant]
  4. IBALGIN [Concomitant]
  5. ERYTHROPOIETINE [Concomitant]
     Dosage: DRUG NAME REPORTED AS ERYTROPOETINUM

REACTIONS (3)
  - AORTIC STENOSIS [None]
  - ATRIAL FIBRILLATION [None]
  - CARDIAC FAILURE [None]
